FAERS Safety Report 6136528-6 (Version None)
Quarter: 2009Q1

REPORT INFORMATION
  Report Type: 
  Country: None (occurrence: None)
  Receive Date: 20090330
  Receipt Date: 20090318
  Transmission Date: 20090719
  Serious: Yes (Other)
  Sender: FDA-Public Use
  Company Number: JP-PFIZER INC-2009184671

PATIENT

DRUGS (5)
  1. EPLERENONE [Suspect]
     Indication: HYPERTENSION
     Dosage: UNK
  2. NIFEDIPINE [Suspect]
     Indication: HYPERTENSION
     Dosage: UNK
  3. VORICONAZOLE [Suspect]
     Indication: PROPHYLAXIS
     Dosage: 6 MG/KG, 2X/DAY
     Route: 042
  4. VORICONAZOLE [Suspect]
     Dosage: 4 MG/KG, 2X/DAY
     Route: 042
  5. CANDESARTAN [Suspect]
     Indication: HYPERTENSION
     Dosage: UNK

REACTIONS (2)
  - DRUG INTERACTION [None]
  - HYPOTENSION [None]
